FAERS Safety Report 14061198 (Version 7)
Quarter: 2017Q4

REPORT INFORMATION
  Report Type: Report from Study
  Country: US (occurrence: US)
  Receive Date: 20171008
  Receipt Date: 20171117
  Transmission Date: 20180321
  Serious: Yes (Other)
  Sender: FDA-Public Use
  Company Number: US-AMGEN-USASP2017149695

PATIENT
  Age: 70 Year
  Sex: Female
  Weight: 64.85 kg

DRUGS (1)
  1. ENBREL [Suspect]
     Active Substance: ETANERCEPT
     Indication: RHEUMATOID ARTHRITIS
     Dosage: 50 MG, QWK
     Route: 065
     Dates: start: 20170915

REACTIONS (4)
  - Decreased immune responsiveness [Not Recovered/Not Resolved]
  - Swelling [Recovered/Resolved]
  - Skin ulcer [Unknown]
  - Rash pustular [Unknown]

NARRATIVE: CASE EVENT DATE: 2017
